FAERS Safety Report 4807816-8 (Version None)
Quarter: 2005Q4

REPORT INFORMATION
  Report Type: 
  Country: None (occurrence: None)
  Receive Date: 20051020
  Receipt Date: 20051007
  Transmission Date: 20060501
  Serious: Yes (Hospitalization, Other)
  Sender: FDA-Public Use
  Company Number: 2005139512

PATIENT
  Sex: Male

DRUGS (1)
  1. PHENELZINE SULFATE (PHENELZINE SULFATE) [Suspect]
     Indication: OVERDOSE
     Dosage: 1 IN 1 D, ORAL
     Route: 048

REACTIONS (5)
  - AGITATION [None]
  - BRAIN DAMAGE [None]
  - COMA [None]
  - LIFE SUPPORT [None]
  - OVERDOSE [None]
